FAERS Safety Report 6913738-9 (Version None)
Quarter: 2010Q3

REPORT INFORMATION
  Report Type: 
  Country: None (occurrence: None)
  Receive Date: 20100809
  Receipt Date: 20100708
  Transmission Date: 20110219
  Serious: No
  Sender: FDA-Public Use
  Company Number: US-BAYER-201018094BCC

PATIENT
  Age: 73 Year
  Sex: Female
  Weight: 102 kg

DRUGS (3)
  1. ALEVE [Suspect]
     Indication: PAIN
     Dosage: TOTAL DAILY DOSE: 220 MG  UNIT DOSE: 220 MG
     Route: 048
     Dates: start: 20100701
  2. COZAAR [Concomitant]
  3. LORAZEPAM [Concomitant]

REACTIONS (1)
  - FAECES DISCOLOURED [None]
